FAERS Safety Report 4331034-3 (Version None)
Quarter: 2004Q1

REPORT INFORMATION
  Report Type: 
  Country: None (occurrence: None)
  Receive Date: 20040331
  Receipt Date: 20040319
  Transmission Date: 20041129
  Serious: Yes (Hospitalization)
  Sender: FDA-Public Use
  Company Number: US-JNJFOC-20040304944

PATIENT
  Age: 49 Year
  Sex: Female
  Weight: 73.9363 kg

DRUGS (4)
  1. REMICADE [Suspect]
     Indication: RHEUMATOID ARTHRITIS
     Dosage: INTRAVENOUS
     Route: 042
     Dates: start: 20030801
  2. METHOTREXATE [Concomitant]
  3. VICODIN [Concomitant]
  4. BLOOD PRESSURE MEDICATION (ANTIHYPERTESIVES) [Concomitant]

REACTIONS (6)
  - BLOOD DISORDER [None]
  - CARDIAC FAILURE [None]
  - DIVERTICULITIS [None]
  - PULMONARY THROMBOSIS [None]
  - RENAL FAILURE [None]
  - VIRAL INFECTION [None]
